FAERS Safety Report 4707478-4 (Version None)
Quarter: 2005Q3

REPORT INFORMATION
  Report Type: 
  Country: None (occurrence: None)
  Receive Date: 20050706
  Receipt Date: 20050217
  Transmission Date: 20060218
  Serious: Yes (Hospitalization)
  Sender: FDA-Public Use
  Company Number: FR-GLAXOSMITHKLINE-B0372103A

PATIENT
  Age: 1 Year
  Sex: Female

DRUGS (4)
  1. ZOVIRAX [Suspect]
     Indication: ILL-DEFINED DISORDER
     Dosage: 600MG PER DAY
     Route: 048
     Dates: start: 20041119, end: 20041211
  2. VISTIDE [Suspect]
     Indication: ILL-DEFINED DISORDER
     Dosage: 40MG PER DAY
     Route: 042
     Dates: start: 20041210, end: 20041210
  3. PROGRAF [Concomitant]
     Dosage: 1.5MG PER DAY
     Route: 048
     Dates: start: 20041120
  4. PROBENECID [Concomitant]

REACTIONS (5)
  - DIALYSIS [None]
  - ILL-DEFINED DISORDER [None]
  - OLIGURIA [None]
  - RENAL FAILURE ACUTE [None]
  - RENAL TUBULAR DISORDER [None]
